FAERS Safety Report 17655501 (Version 1)
Quarter: 2020Q2

REPORT INFORMATION
  Report Type: Spontaneous
  Country: US (occurrence: US)
  Receive Date: 20200410
  Receipt Date: 20200410
  Transmission Date: 20200713
  Serious: Yes (Hospitalization)
  Sender: FDA-Public Use
  Company Number: None

PATIENT
  Sex: Male

DRUGS (8)
  1. FIUTICASONE [Concomitant]
  2. METFORMI N [Concomitant]
  3. PREGABALIN. [Concomitant]
     Active Substance: PREGABALIN
  4. DULOXETINE. [Concomitant]
     Active Substance: DULOXETINE
  5. ATON/ASTATIN [Concomitant]
  6. METOPROLOL SUCCINATE. [Concomitant]
     Active Substance: METOPROLOL SUCCINATE
  7. IOSARTAN [Concomitant]
  8. HUMIRA [Suspect]
     Active Substance: ADALIMUMAB
     Indication: PSORIASIS
     Dosage: Q14DAYS
     Route: 058
     Dates: start: 20181024

REACTIONS (2)
  - Psoriasis [None]
  - Therapy interrupted [None]
